FAERS Safety Report 14149247 (Version 1)
Quarter: 2017Q4

REPORT INFORMATION
  Report Type: Spontaneous
  Country: FR (occurrence: FR)
  Receive Date: 20171101
  Receipt Date: 20171101
  Transmission Date: 20180321
  Serious: Yes (Other)
  Sender: FDA-Public Use
  Company Number: FR-MYLANLABS-2017M1067676

PATIENT
  Age: 45 Year
  Sex: Male

DRUGS (4)
  1. CLOMIFENE [Suspect]
     Active Substance: CLOMIPHENE
     Indication: PRODUCT USED FOR UNKNOWN INDICATION
     Route: 048
  2. TRENBOLONE [Concomitant]
     Active Substance: TRENBOLONE
     Indication: MUSCLE BUILDING THERAPY
     Route: 065
  3. TESTOSTERONE. [Suspect]
     Active Substance: TESTOSTERONE
     Indication: MUSCLE BUILDING THERAPY
     Route: 065
  4. OXANDROLONE. [Concomitant]
     Active Substance: OXANDROLONE
     Indication: MUSCLE BUILDING THERAPY
     Route: 065

REACTIONS (1)
  - Toxic skin eruption [Recovered/Resolved]
